FAERS Safety Report 19376023 (Version 1)
Quarter: 2021Q2

REPORT INFORMATION
  Report Type: Spontaneous
  Country: US (occurrence: US)
  Receive Date: 20210604
  Receipt Date: 20210604
  Transmission Date: 20210717
  Serious: No
  Sender: FDA-Public Use
  Company Number: US-BRAINTREE LABORATORIES, INC.-2020BTE02020

PATIENT
  Age: 76 Year
  Sex: Female
  Weight: 60.78 kg

DRUGS (1)
  1. PEG?3350, SODIUM CHLORIDE, SODIUM BICARBONATE AND POTASSIUM CHLORIDE [Suspect]
     Active Substance: POLYETHYLENE GLYCOL 3350\POTASSIUM CHLORIDE\SODIUM BICARBONATE\SODIUM CHLORIDE
     Indication: COLONOSCOPY
     Dosage: 2L
     Route: 048
     Dates: start: 20201027, end: 20201027

REACTIONS (3)
  - Abdominal distension [None]
  - Abdominal pain [None]
  - Haematochezia [None]

NARRATIVE: CASE EVENT DATE: 20201028
